FAERS Safety Report 6001753-1 (Version None)
Quarter: 2008Q4

REPORT INFORMATION
  Report Type: 
  Country: None (occurrence: None)
  Receive Date: 20081215
  Receipt Date: 20080516
  Transmission Date: 20090506
  Serious: No
  Sender: FDA-Public Use
  Company Number: US-AMGEN-KDL274029

PATIENT
  Sex: Female
  Weight: 77.6 kg

DRUGS (2)
  1. ENBREL [Suspect]
     Indication: PSORIATIC ARTHROPATHY
     Route: 058
     Dates: start: 20070306
  2. PLAQUENIL [Concomitant]
     Route: 048

REACTIONS (1)
  - URINARY TRACT INFECTION [None]
